FAERS Safety Report 9458951 (Version 3)
Quarter: 2014Q1

REPORT INFORMATION
  Report Type: Spontaneous
  Country: US (occurrence: US)
  Receive Date: 20130814
  Receipt Date: 20140221
  Transmission Date: 20141002
  Serious: Yes (Death)
  Sender: FDA-Public Use
  Company Number: US-INCYTE CORPORATION-2013IN001816

PATIENT
  Age: 58 Year
  Sex: Male
  Weight: 126.8 kg

DRUGS (10)
  1. JAKAFI [Suspect]
     Indication: MYELOFIBROSIS
     Dosage: 10 MG, BID
     Route: 048
     Dates: start: 20120711
  2. JAKAFI [Suspect]
     Indication: MYELOPROLIFERATIVE DISORDER
  3. COUMADIN                           /00014802/ [Concomitant]
  4. LASIX                              /00032601/ [Concomitant]
  5. XARELTO [Concomitant]
  6. OXYCODONE [Concomitant]
  7. HYDREA [Concomitant]
  8. ASPIRIN [Concomitant]
  9. NEURONTIN [Concomitant]
  10. VITAMIN D                          /00107901/ [Concomitant]

REACTIONS (1)
  - Completed suicide [Fatal]
